FAERS Safety Report 16301216 (Version 4)
Quarter: 2019Q4

REPORT INFORMATION
  Report Type: Report from Study
  Country: US (occurrence: US)
  Receive Date: 20190510
  Receipt Date: 20191202
  Transmission Date: 20200122
  Serious: Yes (Hospitalization, Other)
  Sender: FDA-Public Use
  Company Number: US-SHIRE-US201915470

PATIENT
  Age: 87 Year
  Sex: Female

DRUGS (2)
  1. TEDUGLUTIDE [Suspect]
     Active Substance: TEDUGLUTIDE
     Indication: PRODUCT USED FOR UNKNOWN INDICATION
     Dosage: 0.37 (UNIT UNKNOWN), 1X/DAY:QD
     Route: 058
     Dates: start: 20151103
  2. TEDUGLUTIDE [Suspect]
     Active Substance: TEDUGLUTIDE
     Dosage: 0.37 MILLIGRAM, QOD
     Route: 058

REACTIONS (3)
  - Hospitalisation [Not Recovered/Not Resolved]
  - Injection site erythema [Unknown]
  - Crohn^s disease [Unknown]

NARRATIVE: CASE EVENT DATE: 20190508
